FAERS Safety Report 6171948-5 (Version None)
Quarter: 2009Q2

REPORT INFORMATION
  Report Type: 
  Country: None (occurrence: None)
  Receive Date: 20090429
  Receipt Date: 20090420
  Transmission Date: 20091009
  Serious: Yes (Other)
  Sender: FDA-Public Use
  Company Number: PHEH2009US03770

PATIENT
  Sex: Female

DRUGS (6)
  1. ZOMETA [Suspect]
     Dosage: 4 MG, QMO
     Route: 042
     Dates: start: 20030101, end: 20060901
  2. ARIMIDEX [Concomitant]
  3. TAMOXIFEN CITRATE [Concomitant]
  4. XELODA [Concomitant]
     Dosage: UNK
     Dates: start: 20060801, end: 20061001
  5. MORPHINE [Concomitant]
  6. VICODIN [Concomitant]

REACTIONS (4)
  - CHOLELITHIASIS [None]
  - OSTEONECROSIS [None]
  - POLYARTHRITIS [None]
  - UTERINE LEIOMYOMA [None]
